FAERS Safety Report 5635942-2 (Version None)
Quarter: 2008Q1

REPORT INFORMATION
  Report Type: 
  Country: None (occurrence: None)
  Receive Date: 20080224
  Receipt Date: 20080220
  Transmission Date: 20080703
  Serious: Yes (Life-Threatening)
  Sender: FDA-Public Use
  Company Number: PHEH2008US02055

PATIENT
  Sex: Female

DRUGS (2)
  1. ENABLEX [Suspect]
     Dosage: UNK, UNK
  2. ARICEPT [Concomitant]
     Dosage: 10 MG, UNK

REACTIONS (2)
  - ANXIETY [None]
  - CRYING [None]
